FAERS Safety Report 4476628-X (Version None)
Quarter: 2004Q4

REPORT INFORMATION
  Report Type: 
  Country: None (occurrence: None)
  Receive Date: 20041013
  Receipt Date: 20040923
  Transmission Date: 20050328
  Serious: Yes (Other)
  Sender: FDA-Public Use
  Company Number: USA040979175

PATIENT
  Age: 70 Year
  Sex: Female

DRUGS (5)
  1. FORTEO [Suspect]
     Indication: OSTEOPOROSIS
     Dates: start: 20031101
  2. TRAZODONE HCL [Concomitant]
  3. REMERON (MIRTAZAPINE ORIFARM) [Concomitant]
  4. FOSAMAX [Concomitant]
  5. MULTIVITAMIN [Concomitant]

REACTIONS (2)
  - BENIGN HEPATIC NEOPLASM [None]
  - PHARMACEUTICAL PRODUCT COMPLAINT [None]
